FAERS Safety Report 4455578-9 (Version None)
Quarter: 2004Q3

REPORT INFORMATION
  Report Type: 
  Country: None (occurrence: None)
  Receive Date: 20040917
  Receipt Date: 20040825
  Transmission Date: 20050211
  Serious: Yes (Hospitalization)
  Sender: FDA-Public Use
  Company Number: JP_040804137

PATIENT
  Age: 76 Year
  Sex: Female
  Weight: 44 kg

DRUGS (6)
  1. GEMZAR [Suspect]
     Indication: PANCREATIC CARCINOMA
     Dosage: 1000 MG OTHER
     Dates: start: 20040802, end: 20040802
  2. MAGLAX [Concomitant]
  3. ALLELOCK (OLOPATADINE HYDROCHLORIDE) [Concomitant]
  4. LENDORM [Concomitant]
  5. DEPAS (ETIZOLAM) [Concomitant]
  6. ZOFRAN [Concomitant]

REACTIONS (3)
  - INTERSTITIAL LUNG DISEASE [None]
  - PHARYNGITIS [None]
  - URTICARIA [None]
